FAERS Safety Report 6801036-3 (Version None)
Quarter: 2010Q2

REPORT INFORMATION
  Report Type: 
  Country: None (occurrence: None)
  Receive Date: 20100624
  Receipt Date: 20100527
  Transmission Date: 20101027
  Serious: Yes (Hospitalization)
  Sender: FDA-Public Use
  Company Number: 012648

PATIENT
  Sex: Female
  Weight: 68 kg

DRUGS (9)
  1. CERTOLIZUMAB PEGOL (CDP870) [Suspect]
     Indication: RHEUMATOID ARTHRITIS
     Dosage: (400 MG 1X/2 WEEKS, CDP870-027 SUBCUTANEOUS), (400 MG 1/2 WEEKS SUBCUTANEOUS)
     Route: 058
     Dates: start: 20050518, end: 20050615
  2. CERTOLIZUMAB PEGOL (CDP870) [Suspect]
     Indication: RHEUMATOID ARTHRITIS
     Dosage: (400 MG 1X/2 WEEKS, CDP870-027 SUBCUTANEOUS), (400 MG 1/2 WEEKS SUBCUTANEOUS)
     Route: 058
     Dates: start: 20050714, end: 20060503
  3. CERTOLIZUMAB PEGOL (CDP870) [Suspect]
     Indication: RHEUMATOID ARTHRITIS
     Dosage: (400 MG 1X/2 WEEKS, CDP870-027 SUBCUTANEOUS), (400 MG 1/2 WEEKS SUBCUTANEOUS)
     Route: 058
     Dates: start: 20060517, end: 20100428
  4. METHOTREXATE [Concomitant]
  5. ACIDUM FOLICUM [Concomitant]
  6. METOPROLOL TARTRATE [Concomitant]
  7. ACETYLSALICYLIC ACID [Concomitant]
  8. PERINDOPRIL [Concomitant]
  9. STRONTIUM RANELATE [Concomitant]

REACTIONS (5)
  - C-REACTIVE PROTEIN INCREASED [None]
  - DYSPNOEA [None]
  - HERPES ZOSTER [None]
  - OSTEOPOROSIS [None]
  - RED BLOOD CELL SEDIMENTATION RATE INCREASED [None]
